FAERS Safety Report 25049544 (Version 1)
Quarter: 2025Q1

REPORT INFORMATION
  Report Type: Spontaneous
  Country: US (occurrence: US)
  Receive Date: 20250307
  Receipt Date: 20250307
  Transmission Date: 20250409
  Serious: No
  Sender: BOEHRINGER INGELHEIM
  Company Number: US-Komodo Health-a23aa0000069cIkAAI

PATIENT
  Sex: Female

DRUGS (3)
  1. JARDIANCE [Suspect]
     Active Substance: EMPAGLIFLOZIN
     Indication: Type 2 diabetes mellitus
  2. JARDIANCE [Suspect]
     Active Substance: EMPAGLIFLOZIN
     Indication: Weight decreased
  3. OZEMPIC [Concomitant]
     Active Substance: SEMAGLUTIDE
     Indication: Fungal infection
     Dosage: 150 MG ONCE EVERY 3 DAYS FOR TWO DOSES
     Dates: start: 202501

REACTIONS (2)
  - Vulvovaginal mycotic infection [Recovered/Resolved]
  - Intentional product use issue [Unknown]

NARRATIVE: CASE EVENT DATE: 20250101
